FAERS Safety Report 5514354-6 (Version None)
Quarter: 2007Q4

REPORT INFORMATION
  Report Type: 
  Country: None (occurrence: None)
  Receive Date: 20071113
  Receipt Date: 20070420
  Transmission Date: 20080405
  Serious: No
  Sender: FDA-Public Use
  Company Number: A0648172A

PATIENT
  Age: 79 Year
  Sex: Male

DRUGS (6)
  1. COREG [Suspect]
     Indication: DRUG USE FOR UNKNOWN INDICATION
     Dosage: 3.125MG TWICE PER DAY
     Route: 048
     Dates: start: 20061201
  2. COREG CR [Suspect]
     Indication: DRUG USE FOR UNKNOWN INDICATION
     Dosage: 10MG PER DAY
     Route: 048
  3. LASIX [Concomitant]
  4. SINEMET [Concomitant]
  5. LISINOPRIL [Concomitant]
  6. POTASSIUM CHLORIDE [Concomitant]

REACTIONS (1)
  - ADVERSE DRUG REACTION [None]
